FAERS Safety Report 4521194-3 (Version None)
Quarter: 2004Q4

REPORT INFORMATION
  Report Type: 
  Country: None (occurrence: None)
  Receive Date: 20041208
  Receipt Date: 20041201
  Transmission Date: 20050328
  Serious: Yes (Life-Threatening)
  Sender: FDA-Public Use
  Company Number: FR-BRISTOL-MYERS SQUIBB COMPANY-12781670

PATIENT
  Age: 36 Year
  Sex: Male
  Weight: 89 kg

DRUGS (8)
  1. ZERIT [Suspect]
     Indication: HIV INFECTION
     Route: 048
     Dates: start: 20020812, end: 20040727
  2. SUSTIVA [Suspect]
     Indication: HIV INFECTION
     Route: 048
     Dates: start: 20020328, end: 20021209
  3. EPIVIR [Suspect]
     Route: 048
     Dates: start: 20020812, end: 20040727
  4. VIRACEPT [Suspect]
     Route: 048
     Dates: start: 20020328, end: 20020812
  5. COMBIVIR [Suspect]
     Route: 048
     Dates: start: 20040727, end: 20040831
  6. KALETRA [Suspect]
     Route: 048
     Dates: start: 20020812
  7. VIREAD [Concomitant]
     Dates: start: 20040903
  8. EMTRIVA [Concomitant]
     Dates: start: 20040903

REACTIONS (1)
  - ACUTE MYELOID LEUKAEMIA [None]
